FAERS Safety Report 17546936 (Version 1)
Quarter: 2020Q1

REPORT INFORMATION
  Report Type: Spontaneous
  Country: CA (occurrence: CA)
  Receive Date: 20200316
  Receipt Date: 20200316
  Transmission Date: 20200409
  Serious: Yes (Other)
  Sender: FDA-Public Use
  Company Number: CA-TEVA-2020-CA-1202896

PATIENT
  Age: 61 Year
  Sex: Female

DRUGS (6)
  1. DICLOFENAC [Concomitant]
     Active Substance: DICLOFENAC
     Indication: RHEUMATOID ARTHRITIS
  2. LEFLUNOMIDE. [Concomitant]
     Active Substance: LEFLUNOMIDE
     Indication: RHEUMATOID ARTHRITIS
  3. HYDROXYCHLOROQUINE SULFATE. [Concomitant]
     Active Substance: HYDROXYCHLOROQUINE SULFATE
     Indication: RHEUMATOID ARTHRITIS
  4. METHOTREXATE. [Suspect]
     Active Substance: METHOTREXATE
     Indication: RHEUMATOID ARTHRITIS
     Route: 058
  5. RESTASIS [Concomitant]
     Active Substance: CYCLOSPORINE
  6. FOLIC ACID. [Concomitant]
     Active Substance: FOLIC ACID

REACTIONS (11)
  - Fall [Recovered/Resolved]
  - Memory impairment [Recovered/Resolved]
  - Drug ineffective [Recovered/Resolved]
  - Sjogren^s syndrome [Recovered/Resolved]
  - Off label use [Recovered/Resolved]
  - Product use issue [Recovered/Resolved]
  - Wound [Recovered/Resolved]
  - Eye contusion [Recovered/Resolved]
  - Herpes zoster [Recovered/Resolved]
  - Influenza [Recovered/Resolved]
  - Joint swelling [Recovered/Resolved]
